FAERS Safety Report 24592336 (Version 1)
Quarter: 2024Q4

REPORT INFORMATION
  Report Type: Spontaneous
  Country: US (occurrence: US)
  Receive Date: 20241108
  Receipt Date: 20241108
  Transmission Date: 20250115
  Serious: No
  Sender: APOTEX
  Company Number: US-APOTEX-2024AP017313

PATIENT
  Sex: Male

DRUGS (1)
  1. FLUTICASONE PROPIONATE [Suspect]
     Active Substance: FLUTICASONE PROPIONATE
     Indication: Multiple allergies
     Dosage: 4 DOSAGE FORM, BID
     Route: 045
     Dates: start: 202410

REACTIONS (2)
  - Vitreous floaters [Unknown]
  - Photopsia [Unknown]

NARRATIVE: CASE EVENT DATE: 20241001
